FAERS Safety Report 17004120 (Version 1)
Quarter: 2019Q4

REPORT INFORMATION
  Report Type: Other
  Country: CA (occurrence: CA)
  Receive Date: 20191107
  Receipt Date: 20191107
  Transmission Date: 20200122
  Serious: Yes (Hospitalization)
  Sender: FDA-Public Use
  Company Number: CA-PFIZER INC-2019473985

PATIENT

DRUGS (1)
  1. GABAPENTIN. [Suspect]
     Active Substance: GABAPENTIN
     Dosage: UNK
     Route: 064

REACTIONS (10)
  - Heart rate decreased [Unknown]
  - Arrhythmia [Unknown]
  - Feeling jittery [Unknown]
  - Pyrexia [Unknown]
  - Foetal exposure during pregnancy [Unknown]
  - Hypotonia [Unknown]
  - Diarrhoea [Unknown]
  - Hypoglycaemia [Unknown]
  - Respiratory distress [Unknown]
  - Jaundice [Unknown]
